FAERS Safety Report 7194185-4 (Version None)
Quarter: 2010Q4

REPORT INFORMATION
  Report Type: 
  Country: None (occurrence: None)
  Receive Date: 20101223
  Receipt Date: 20101215
  Transmission Date: 20110411
  Serious: Yes (Hospitalization)
  Sender: FDA-Public Use
  Company Number: DE-TEVA-260620ISR

PATIENT
  Sex: Female

DRUGS (1)
  1. COPAXONE [Suspect]
     Indication: MULTIPLE SCLEROSIS
     Route: 058
     Dates: start: 20100608, end: 20101001

REACTIONS (5)
  - ABASIA [None]
  - BLOOD IRON DECREASED [None]
  - CIRCULATORY COLLAPSE [None]
  - FAECAL INCONTINENCE [None]
  - PULSE PRESSURE DECREASED [None]
